FAERS Safety Report 8862856 (Version 1)
Quarter: 2012Q4

REPORT INFORMATION
  Report Type: 
  Country: GB (occurrence: GB)
  Receive Date: 20121026
  Receipt Date: 20121026
  Transmission Date: 20130627
  Serious: Yes (Other)
  Sender: FDA-Public Use
  Company Number: GB-VIIV HEALTHCARE LIMITED-B0840171A

PATIENT
  Sex: Male

DRUGS (4)
  1. CELSENTRI [Suspect]
     Indication: PRODUCT USED FOR UNKNOWN INDICATION
     Dosage: 300MG Twice per day
     Route: 065
  2. TRUVADA [Concomitant]
  3. RALTEGRAVIR [Concomitant]
  4. ETRAVIRINE [Concomitant]

REACTIONS (1)
  - Myocardial infarction [Unknown]
